FAERS Safety Report 13234089 (Version 1)
Quarter: 2017Q1

REPORT INFORMATION
  Report Type: Report from Study
  Country: US (occurrence: US)
  Receive Date: 20170215
  Receipt Date: 20170215
  Transmission Date: 20170428
  Serious: Yes (Other)
  Sender: FDA-Public Use
  Company Number: PHEH2017US004058

PATIENT
  Sex: Male

DRUGS (2)
  1. AIN457 [Suspect]
     Active Substance: SECUKINUMAB
     Indication: PSORIASIS
     Route: 065
     Dates: start: 20160301, end: 20161228
  2. AIN457 [Suspect]
     Active Substance: SECUKINUMAB
     Route: 065

REACTIONS (1)
  - Pneumonia streptococcal [Unknown]

NARRATIVE: CASE EVENT DATE: 201612
